FAERS Safety Report 7729930-X (Version None)
Quarter: 2011Q3

REPORT INFORMATION
  Report Type: 
  Country: None (occurrence: None)
  Receive Date: 20110906
  Receipt Date: 20110823
  Transmission Date: 20111222
  Serious: Yes (Hospitalization)
  Sender: FDA-Public Use
  Company Number: PHHY2011FR75829

PATIENT
  Sex: Male

DRUGS (4)
  1. AMOXICILLIN TRIHYDRATE [Concomitant]
     Dosage: 1 G, BID
     Dates: start: 20101001, end: 20110705
  2. VALACYCLOVIR HYDROCHLORIDE [Concomitant]
     Dosage: UNK
     Dates: start: 20101001, end: 20110708
  3. TASIGNA [Suspect]
     Indication: CHRONIC MYELOID LEUKAEMIA
     Dosage: 200 MG, BID
     Route: 048
     Dates: start: 20110407, end: 20110705
  4. URSOLVAN-200 [Concomitant]
     Dosage: 200 MG, UNK

REACTIONS (10)
  - HEPATITIS CHOLESTATIC [None]
  - HYPERHIDROSIS [None]
  - CHROMATURIA [None]
  - PYREXIA [None]
  - GENERAL PHYSICAL HEALTH DETERIORATION [None]
  - INFLAMMATION [None]
  - COUGH [None]
  - JAUNDICE [None]
  - GRAFT VERSUS HOST DISEASE [None]
  - CELL DEATH [None]
